FAERS Safety Report 23269582 (Version 1)
Quarter: 2023Q4

REPORT INFORMATION
  Report Type: Spontaneous
  Country: SI (occurrence: SI)
  Receive Date: 20231207
  Receipt Date: 20231207
  Transmission Date: 20240110
  Serious: Yes (Hospitalization, Other)
  Sender: FDA-Public Use
  Company Number: SI-ABBVIE-5524455

PATIENT
  Age: 67 Year
  Sex: Male
  Weight: 50 kg

DRUGS (5)
  1. CARBIDOPA\LEVODOPA [Suspect]
     Active Substance: CARBIDOPA\LEVODOPA
     Indication: Parkinson^s disease
     Dosage: AS PER NEUROLOGIST RECOMMENDATION
     Route: 050
     Dates: start: 201706
  2. CARBIDOPA\LEVODOPA [Suspect]
     Active Substance: CARBIDOPA\LEVODOPA
  3. METFORMIN HYDROCHLORIDE [Concomitant]
     Active Substance: METFORMIN HYDROCHLORIDE
     Indication: Product used for unknown indication
     Dates: start: 2015
  4. Milgamma [Concomitant]
     Indication: Product used for unknown indication
     Dosage: 35 GTT 1/WEEK
     Dates: start: 2019
  5. CHOLECALCIFEROL [Concomitant]
     Active Substance: CHOLECALCIFEROL
     Indication: Product used for unknown indication
     Dosage: 1 /DAY
     Dates: start: 2017

REACTIONS (3)
  - Embedded device [Recovered/Resolved]
  - Skin disorder [Unknown]
  - Device use error [Unknown]

NARRATIVE: CASE EVENT DATE: 20231110
